FAERS Safety Report 14392203 (Version 1)
Quarter: 2018Q1

REPORT INFORMATION
  Report Type: Spontaneous
  Country: JP (occurrence: JP)
  Receive Date: 20180116
  Receipt Date: 20180116
  Transmission Date: 20180509
  Serious: Yes (Life-Threatening)
  Sender: FDA-Public Use
  Company Number: JP-PFIZER INC-2018018045

PATIENT
  Age: 63 Year
  Sex: Male

DRUGS (4)
  1. CELECOX [Suspect]
     Active Substance: CELECOXIB
     Dosage: UNK
     Dates: start: 20171216
  2. CELECOX [Suspect]
     Active Substance: CELECOXIB
     Dosage: 200 MG, DAILY
     Route: 048
     Dates: start: 201711, end: 201711
  3. SELBEX [Suspect]
     Active Substance: TEPRENONE
     Dosage: 100 MG, DAILY
     Route: 048
     Dates: start: 201711, end: 201711
  4. SELBEX [Suspect]
     Active Substance: TEPRENONE
     Dosage: UNK
     Dates: start: 20171216

REACTIONS (3)
  - Electrocardiogram ST segment elevation [Recovered/Resolved]
  - Anaphylactic reaction [Recovered/Resolved]
  - Drug eruption [Recovered/Resolved]

NARRATIVE: CASE EVENT DATE: 201711
